FAERS Safety Report 7630906-1 (Version None)
Quarter: 2011Q3

REPORT INFORMATION
  Report Type: 
  Country: None (occurrence: None)
  Receive Date: 20110724
  Receipt Date: 20110714
  Transmission Date: 20111222
  Serious: Yes (Hospitalization)
  Sender: FDA-Public Use
  Company Number: US-BRISTOL-MYERS SQUIBB COMPANY-15857527

PATIENT
  Age: 49 Year
  Sex: Male
  Weight: 88 kg

DRUGS (23)
  1. PROCHLORPERAZINE MALEATE [Concomitant]
     Dosage: EVERY 4-6 HRS
     Route: 048
  2. ROPINIROLE [Concomitant]
     Dosage: THEN 2 TAB DAILY
     Route: 048
  3. ZOLPIDEM [Concomitant]
     Dosage: 1 DF: 1 TAB AT BED TIME
     Route: 048
  4. FOLIC ACID [Concomitant]
     Route: 048
  5. CETUXIMAB [Suspect]
     Indication: NON-SMALL CELL LUNG CANCER
     Dosage: INTERRUPTED ON 14JUN11,NO OF INF: 16 RESTARTED ON 24JUN11
     Route: 042
     Dates: start: 20110301
  6. ZOFRAN [Concomitant]
     Route: 048
  7. ATIVAN [Concomitant]
     Dosage: AS NEEDED
     Route: 048
  8. PROTONIX [Concomitant]
     Route: 048
  9. MAGIC MOUTHWASH [Concomitant]
     Dosage: ALUMINIUMOH,LIDOCAINE,SIMETHICONE,DIPHENHYDRAMINIE,MG OH AS NEEDED
     Route: 048
  10. LORTAB [Concomitant]
     Dosage: 1 DF: 1-2 TAB 5MG/500MG
     Route: 048
  11. PROAIR HFA [Concomitant]
     Dosage: 2 PUFFS 2 1 DAY
     Route: 055
  12. VITAMIN D [Concomitant]
     Dosage: 1 DF:  1 CAP
     Route: 048
  13. CISPLATIN [Suspect]
     Indication: NON-SMALL CELL LUNG CANCER
     Dosage: NO OF INF:6
     Route: 042
     Dates: start: 20110301, end: 20110614
  14. MAGNESIUM CHLORIDE [Concomitant]
     Dosage: 1 DF: 2 TABS 64 MG
     Route: 048
  15. CALCIUM CARBONATE [Concomitant]
     Dosage: 1 DF:  1 CAP
     Route: 048
  16. VITAMIN D [Concomitant]
     Dosage: 1 DF: 600/200MG
     Route: 048
  17. CHLORPROMAZINE [Concomitant]
     Dosage: 3 1 DAY
     Route: 048
  18. CLEOCIN T [Concomitant]
     Route: 061
  19. DEXAMETHASONE [Concomitant]
     Indication: PREMEDICATION
     Route: 048
  20. MINOCYCLINE HCL [Concomitant]
     Route: 048
  21. PEMETREXED DISODIUM [Suspect]
     Indication: NON-SMALL CELL LUNG CANCER
     Dosage: NO OF INF:6
     Route: 042
     Dates: start: 20110301, end: 20110614
  22. MORPHINE [Concomitant]
     Dosage: 1 DF: 1-2 TAB EVERY 2-4 HRS
     Route: 048
  23. ZOLOFT [Concomitant]
     Route: 048

REACTIONS (7)
  - THROMBOCYTOPENIA [None]
  - HYPOCALCAEMIA [None]
  - DEHYDRATION [None]
  - VERTIGO [None]
  - LEUKOCYTOSIS [None]
  - HYPOMAGNESAEMIA [None]
  - DECREASED APPETITE [None]
